FAERS Safety Report 5410039-5 (Version None)
Quarter: 2007Q3

REPORT INFORMATION
  Report Type: 
  Country: None (occurrence: None)
  Receive Date: 20070809
  Receipt Date: 20070730
  Transmission Date: 20080115
  Serious: Yes (Death, Hospitalization)
  Sender: FDA-Public Use
  Company Number: ZA-ABBOTT-07P-143-0376235-00

PATIENT
  Sex: Female
  Weight: 65 kg

DRUGS (2)
  1. KALETRA [Suspect]
     Indication: HIV INFECTION
     Dosage: 400/100 MG
     Route: 048
     Dates: start: 20070702
  2. BACTRIM [Concomitant]
     Indication: ANTIFUNGAL PROPHYLAXIS
     Dates: start: 20060401, end: 20070731

REACTIONS (3)
  - ANXIETY [None]
  - DEATH [None]
  - UNEVALUABLE EVENT [None]
